FAERS Safety Report 9120403 (Version 2)
Quarter: 2013Q1

REPORT INFORMATION
  Report Type: Spontaneous
  Country: US (occurrence: US)
  Receive Date: 20130226
  Receipt Date: 20130326
  Transmission Date: 20140127
  Serious: Yes (Other)
  Sender: FDA-Public Use
  Company Number: US-FRI-1000042883

PATIENT
  Age: 79 Year
  Sex: Female
  Weight: 46.7 kg

DRUGS (15)
  1. TUDORZA PRESSAIR [Suspect]
     Indication: CHRONIC OBSTRUCTIVE PULMONARY DISEASE
     Dosage: 800 MCG
     Route: 055
     Dates: start: 20130128, end: 20130128
  2. TUDORZA PRESSAIR [Suspect]
     Indication: DYSPNOEA
  3. NEURONTIN [Concomitant]
     Dosage: 300 MG
  4. NASONEX [Concomitant]
     Dosage: 2 INHALATIONS IN EACH NOSTRIL 2 TIMES A DAY
  5. PLAVIX [Concomitant]
     Dosage: 75 MG
     Route: 048
  6. AMITRIPTYLINE [Concomitant]
     Dosage: 10 MG QHS PRN
  7. FUROSEMIDE [Concomitant]
     Dosage: 20 MG PRN
  8. ISOSORBIDE MONONITRATE [Concomitant]
     Dosage: 20 MG
  9. SYNTHROID [Concomitant]
     Dosage: 50 MCG
     Route: 048
  10. TOPROL-XL [Concomitant]
     Dosage: 25 MG
     Route: 048
  11. NITROGLYCERIN [Concomitant]
     Dosage: 0.4 MG EVERY 5 MINUTES (MAXIMUM 3 DOSES)
  12. CRESTOR [Concomitant]
     Dosage: 40 MG QHS
     Route: 048
  13. ZOVIRAX [Concomitant]
     Dosage: APPLY TO AREA TID PRN
  14. MECLIZINE [Concomitant]
     Indication: DIZZINESS
     Dosage: 25 MG TID PRN
  15. ALPRAZOLAM [Concomitant]
     Indication: ANXIETY
     Dosage: 0.25 MG BID PRN
     Route: 048

REACTIONS (3)
  - Urinary retention [Recovered/Resolved]
  - Swollen tongue [Recovered/Resolved]
  - Vision blurred [Recovered/Resolved]
